FAERS Safety Report 8821548 (Version 1)
Quarter: 2012Q4

REPORT INFORMATION
  Report Type: 
  Country: ES (occurrence: ES)
  Receive Date: 20121002
  Receipt Date: 20121002
  Transmission Date: 20130627
  Serious: Yes (Hospitalization)
  Sender: FDA-Public Use
  Company Number: ES-PFIZER INC-2012239496

PATIENT
  Age: 63 Year
  Sex: Male

DRUGS (1)
  1. SALAZOPYRIN [Suspect]
     Indication: PSORIATIC ARTHROPATHY
     Dosage: 1000 mg, 2x/day
     Route: 048
     Dates: start: 20120312, end: 20120419

REACTIONS (3)
  - Interstitial lung disease [Recovering/Resolving]
  - Eosinophilia [Recovering/Resolving]
  - Dyspnoea [Recovered/Resolved]
